FAERS Safety Report 11328704 (Version 2)
Quarter: 2015Q3

REPORT INFORMATION
  Report Type: Report from Study
  Country: NO (occurrence: NO)
  Receive Date: 20150731
  Receipt Date: 20150911
  Transmission Date: 20151125
  Serious: Yes (Hospitalization, Other)
  Sender: FDA-Public Use
  Company Number: NO-PFIZER INC-2015242497

PATIENT
  Age: 70 Year
  Sex: Male
  Weight: 74 kg

DRUGS (11)
  1. BLINDED SILDENAFIL CITRATE [Suspect]
     Active Substance: SILDENAFIL CITRATE
     Indication: CARDIAC FAILURE
     Dosage: UNK, 3X/DAY
     Dates: start: 20150409, end: 20150609
  2. CALCIGRAN FORTE [Concomitant]
     Indication: OSTEOPOROSIS PROPHYLAXIS
     Dosage: UNK
     Route: 048
  3. SERETIDE [Concomitant]
     Active Substance: FLUTICASONE FUROATE\SALMETEROL XINAFOATE
     Indication: CHRONIC OBSTRUCTIVE PULMONARY DISEASE
     Dosage: UNK
     Route: 055
  4. METOPROLOL TARTRATE. [Concomitant]
     Active Substance: METOPROLOL TARTRATE
     Indication: CONGESTIVE CARDIOMYOPATHY
     Dosage: UNK
     Route: 048
  5. PLACEBO [Suspect]
     Active Substance: UNSPECIFIED INGREDIENT
     Indication: CARDIAC FAILURE
     Dosage: UNK, 3X/DAY
     Dates: start: 20150409, end: 20150609
  6. ALDACTONE [Concomitant]
     Active Substance: SPIRONOLACTONE
     Indication: CONGESTIVE CARDIOMYOPATHY
     Dosage: UNK
     Route: 048
  7. PLACEBO [Suspect]
     Active Substance: UNSPECIFIED INGREDIENT
     Indication: CARDIAC FAILURE
     Dosage: UNK, 3X/DAY
     Dates: start: 20150409, end: 20150609
  8. BURINEX [Concomitant]
     Active Substance: BUMETANIDE
     Indication: CONGESTIVE CARDIOMYOPATHY
     Dosage: UNK
     Route: 048
  9. WARFARIN [Concomitant]
     Active Substance: WARFARIN
     Indication: ATRIAL FIBRILLATION
     Dosage: UNK
     Route: 048
  10. ZOLOFT [Concomitant]
     Active Substance: SERTRALINE HYDROCHLORIDE
     Indication: DEPRESSION
     Dosage: UNK
     Route: 048
  11. RENITEC [Concomitant]
     Active Substance: ENALAPRIL MALEATE
     Indication: CONGESTIVE CARDIOMYOPATHY
     Dosage: UNK
     Route: 048

REACTIONS (2)
  - Supraventricular tachycardia [Recovered/Resolved]
  - Pneumonia [Recovered/Resolved]

NARRATIVE: CASE EVENT DATE: 20150608
